FAERS Safety Report 12250212 (Version 2)
Quarter: 2016Q2

REPORT INFORMATION
  Report Type: Spontaneous
  Country: JP (occurrence: JP)
  Receive Date: 20160408
  Receipt Date: 20160531
  Transmission Date: 20160815
  Serious: Yes (Hospitalization)
  Sender: FDA-Public Use
  Company Number: JP-009507513-1603JPN001751

PATIENT
  Age: 31 Year
  Sex: Male
  Weight: 65.8 kg

DRUGS (7)
  1. TEMODAL [Suspect]
     Active Substance: TEMOZOLOMIDE
     Dosage: TOTAL DAILY DOSE: 120 MG
     Route: 048
     Dates: start: 20150923, end: 20151027
  2. E KEPPRA [Concomitant]
     Active Substance: LEVETIRACETAM
     Indication: EPILEPSY
     Dosage: 500 MG, BID
     Route: 048
     Dates: start: 20150904, end: 20151114
  3. ZOFRAN [Suspect]
     Active Substance: ONDANSETRON HYDROCHLORIDE
     Indication: PROPHYLAXIS OF NAUSEA AND VOMITING
     Dosage: 4 MG, QD
     Route: 048
     Dates: start: 20150923, end: 20151027
  4. CEFDITOREN PIVOXIL. [Concomitant]
     Active Substance: CEFDITOREN PIVOXIL
     Indication: INFECTION PROPHYLAXIS
     Dosage: 100 MG, TID
     Route: 048
     Dates: start: 20150930, end: 20151003
  5. DEPAKENE [Concomitant]
     Active Substance: VALPROIC ACID
     Indication: EPILEPSY
     Dosage: 200 MG, TID
     Route: 048
     Dates: start: 20150815, end: 20150904
  6. BAKTAR [Suspect]
     Active Substance: SULFAMETHOXAZOLE\TRIMETHOPRIM
     Indication: OPPORTUNISTIC INFECTION PROPHYLAXIS
  7. BAKTAR [Suspect]
     Active Substance: SULFAMETHOXAZOLE\TRIMETHOPRIM
     Indication: TOTAL LUNG CAPACITY DECREASED
     Dosage: 1 DF, QD
     Route: 048
     Dates: start: 20151019, end: 20151023

REACTIONS (4)
  - White blood cell count increased [Recovered/Resolved]
  - Dermatitis [Recovering/Resolving]
  - Eosinophilia [Recovered/Resolved]
  - Lymphadenopathy [Recovering/Resolving]

NARRATIVE: CASE EVENT DATE: 2015
